FAERS Safety Report 5688563-X (Version None)
Quarter: 2008Q1

REPORT INFORMATION
  Report Type: 
  Country: None (occurrence: None)
  Receive Date: 20080331
  Receipt Date: 20080327
  Transmission Date: 20080703
  Serious: Yes (Life-Threatening)
  Sender: FDA-Public Use
  Company Number: US-BRISTOL-MYERS SQUIBB COMPANY-14129340

PATIENT

DRUGS (1)
  1. CARBOPLATIN [Suspect]

REACTIONS (1)
  - CARDIO-RESPIRATORY ARREST [None]
